FAERS Safety Report 25118981 (Version 1)
Quarter: 2025Q1

REPORT INFORMATION
  Report Type: Spontaneous
  Country: US (occurrence: US)
  Receive Date: 20250325
  Receipt Date: 20250325
  Transmission Date: 20250409
  Serious: No
  Sender: SANOFI AVENTIS
  Company Number: US-SA-2025SA085733

PATIENT
  Age: 3 Year
  Sex: Male
  Weight: 11.97 kg

DRUGS (5)
  1. DUPIXENT [Suspect]
     Active Substance: DUPILUMAB
     Indication: Dermatitis atopic
     Dosage: UNK, Q4W
     Route: 058
  2. MIRALAX [Concomitant]
     Active Substance: POLYETHYLENE GLYCOL 3350
  3. CLONAZEPAM [Concomitant]
     Active Substance: CLONAZEPAM
  4. CYPROHEPTADINE HYDROCHLORIDE [Concomitant]
     Active Substance: CYPROHEPTADINE HYDROCHLORIDE
  5. LACOSAMIDE [Concomitant]
     Active Substance: LACOSAMIDE

REACTIONS (1)
  - Rash [Unknown]
